FAERS Safety Report 18884505 (Version 1)
Quarter: 2021Q1

REPORT INFORMATION
  Report Type: Spontaneous
  Country: FR (occurrence: FR)
  Receive Date: 20210212
  Receipt Date: 20210212
  Transmission Date: 20210420
  Serious: Yes (Hospitalization)
  Sender: FDA-Public Use
  Company Number: NVSC2021FR029427

PATIENT
  Age: 75 Year
  Sex: Female

DRUGS (4)
  1. PARACETAMOL [Suspect]
     Active Substance: ACETAMINOPHEN
     Indication: DENTAL CARE
     Dosage: 1 G, TOTAL
     Route: 048
     Dates: start: 20200220, end: 20200220
  2. ADRENALINE [Suspect]
     Active Substance: EPINEPHRINE
     Indication: DENTAL CARE
     Dosage: 1 DF
     Route: 053
     Dates: start: 20200220, end: 20200220
  3. ARTICAINE [Suspect]
     Active Substance: ARTICAINE
     Indication: DENTAL CARE
     Dosage: 1 DF
     Route: 053
     Dates: start: 20200220, end: 20200220
  4. AMOXICILLINE [Suspect]
     Active Substance: AMOXICILLIN
     Indication: DENTAL CARE
     Dosage: 1 G, TOTAL
     Route: 048
     Dates: start: 20200220, end: 20200220

REACTIONS (1)
  - Anaphylactic shock [Recovered/Resolved]

NARRATIVE: CASE EVENT DATE: 20200220
